FAERS Safety Report 5732425-6 (Version None)
Quarter: 2008Q2

REPORT INFORMATION
  Report Type: 
  Country: None (occurrence: None)
  Receive Date: 20080507
  Receipt Date: 20080501
  Transmission Date: 20081010
  Serious: Yes (Death, Life-Threatening, Hospitalization)
  Sender: FDA-Public Use
  Company Number: 028-C5013-08050074

PATIENT
  Age: 71 Year
  Sex: Male

DRUGS (2)
  1. CC-5013 (LENALIDOMIDE) (CAPSULES) [Suspect]
     Indication: MULTIPLE MYELOMA
     Dosage: 15 MG, X21 DAYS OR 28 DAY CYCLE, ORAL
     Route: 048
     Dates: start: 20080125
  2. DEXAMETHASONE TAB [Suspect]
     Indication: MULTIPLE MYELOMA
     Dosage: 40 MG, X 4 DAYS (DAYS 1-4), ORAL
     Route: 048
     Dates: start: 20080125

REACTIONS (7)
  - BRAIN COMPRESSION [None]
  - CEREBRAL INFARCTION [None]
  - CEREBROVASCULAR ACCIDENT [None]
  - DYSPNOEA [None]
  - HAEMOGLOBIN DECREASED [None]
  - LOSS OF CONSCIOUSNESS [None]
  - SHIFT TO THE LEFT [None]
